FAERS Safety Report 7665204 (Version 7)
Quarter: 2012Q4

REPORT INFORMATION
  Report Type: 
  Country: US (occurrence: US)
  Receive Date: 20101112
  Receipt Date: 20121109
  Transmission Date: 20130627
  Serious: Yes (Hospitalization, Other)
  Sender: FDA-Public Use
  Company Number: US-BIOGENIDEC-2010BI036712

PATIENT
  Age: 27 Year
  Sex: Female
  Weight: 97 kg

DRUGS (2)
  1. AVONEX [Suspect]
     Indication: MULTIPLE SCLEROSIS
     Route: 030
     Dates: start: 20061227, end: 201010
  2. NORVASC [Concomitant]
     Indication: ESSENTIAL HYPERTENSION

REACTIONS (7)
  - Back pain [Unknown]
  - Urinary tract infection [Unknown]
  - Hypertension [Recovered/Resolved]
  - Placental disorder [Recovered/Resolved]
  - Complication of pregnancy [Unknown]
  - Premature labour [Recovered/Resolved]
  - Multiple sclerosis relapse [Unknown]
